FAERS Safety Report 14563827 (Version 1)
Quarter: 2018Q1

REPORT INFORMATION
  Report Type: Spontaneous
  Country: NL (occurrence: NL)
  Receive Date: 20180222
  Receipt Date: 20180222
  Transmission Date: 20180509
  Serious: Yes (Life-Threatening, Hospitalization, Congenital Anomaly)
  Sender: FDA-Public Use
  Company Number: NL-TEVA-2018-NL-858037

PATIENT
  Sex: Male
  Weight: 4 kg

DRUGS (1)
  1. SERTRALINE [Suspect]
     Active Substance: SERTRALINE HYDROCHLORIDE
     Indication: ANXIETY DISORDER
     Dosage: 1X DAILY 100 MG; THERAPY END DATE WAS ASKED BUT UNKNOWN.
     Route: 064
     Dates: start: 201711

REACTIONS (1)
  - Persistent foetal circulation [Recovering/Resolving]
